FAERS Safety Report 19987841 (Version 2)
Quarter: 2023Q4

REPORT INFORMATION
  Report Type: Spontaneous
  Country: FR (occurrence: FR)
  Receive Date: 20211023
  Receipt Date: 20231021
  Transmission Date: 20240109
  Serious: Yes (Hospitalization)
  Sender: FDA-Public Use
  Company Number: None

PATIENT
  Age: 61 Year
  Sex: Male
  Weight: 49 kg

DRUGS (21)
  1. CARBOPLATIN [Suspect]
     Active Substance: CARBOPLATIN
     Indication: Lung adenocarcinoma stage IV
     Route: 042
     Dates: start: 20210409
  2. ISONIAZID [Suspect]
     Active Substance: ISONIAZID
     Indication: Tuberculosis
     Route: 048
     Dates: start: 20210808, end: 20210810
  3. PEMBROLIZUMAB [Suspect]
     Active Substance: PEMBROLIZUMAB
     Indication: Lung adenocarcinoma stage IV
     Dosage: C4
     Route: 042
     Dates: start: 20210723
  4. ALIMTA [Suspect]
     Active Substance: PEMETREXED DISODIUM
     Indication: Lung adenocarcinoma stage IV
     Route: 042
     Dates: start: 20210430
  5. ETHAMBUTOL HYDROCHLORIDE [Concomitant]
     Active Substance: ETHAMBUTOL HYDROCHLORIDE
     Indication: Tuberculosis
     Route: 048
     Dates: start: 20210420, end: 20210515
  6. RIFAMPIN [Concomitant]
     Active Substance: RIFAMPIN
     Route: 048
     Dates: start: 20210630, end: 20210712
  7. LEVOFLOXACIN [Concomitant]
     Active Substance: LEVOFLOXACIN
     Indication: Tuberculosis
     Route: 048
     Dates: start: 20210727, end: 20210808
  8. BEDAQUILINE [Concomitant]
     Active Substance: BEDAQUILINE
     Indication: Lung adenocarcinoma stage IV
     Route: 048
     Dates: start: 20210812
  9. PYRAZINAMIDE [Concomitant]
     Active Substance: PYRAZINAMIDE
     Route: 048
     Dates: start: 20210420, end: 20210515
  10. CARBOPLATIN [Suspect]
     Active Substance: CARBOPLATIN
     Indication: Lung adenocarcinoma stage IV
     Route: 042
     Dates: start: 20210625
  11. CARBOPLATIN [Suspect]
     Active Substance: CARBOPLATIN
     Indication: Lung adenocarcinoma stage IV
     Route: 042
     Dates: start: 20210430
  12. CARBOPLATIN [Suspect]
     Active Substance: CARBOPLATIN
     Indication: Lung adenocarcinoma stage IV
     Route: 042
     Dates: start: 20210723
  13. RIFAMPIN [Concomitant]
     Active Substance: RIFAMPIN
     Route: 048
     Dates: start: 20210420, end: 20210515
  14. BEDAQUILINE [Concomitant]
     Active Substance: BEDAQUILINE
     Route: 048
     Dates: start: 20210727, end: 20210805
  15. ISONIAZID [Suspect]
     Active Substance: ISONIAZID
     Indication: Tuberculosis
     Dosage: 2 MG/KG
     Route: 048
     Dates: start: 20210727, end: 20210810
  16. ISONIAZID [Suspect]
     Active Substance: ISONIAZID
     Indication: Tuberculosis
     Route: 048
     Dates: start: 20210808, end: 20210810
  17. ISONIAZID [Suspect]
     Active Substance: ISONIAZID
     Indication: Tuberculosis
     Route: 048
     Dates: start: 20210702, end: 20210712
  18. ISONIAZID [Suspect]
     Active Substance: ISONIAZID
     Indication: Tuberculosis
     Route: 048
     Dates: start: 20210420, end: 20210514
  19. PEMBROLIZUMAB [Suspect]
     Active Substance: PEMBROLIZUMAB
     Indication: Lung adenocarcinoma stage IV
     Dosage: C2
     Route: 042
     Dates: start: 20210430
  20. PEMBROLIZUMAB [Suspect]
     Active Substance: PEMBROLIZUMAB
     Indication: Lung adenocarcinoma stage IV
     Dosage: C1
     Route: 042
     Dates: start: 20210409
  21. PEMBROLIZUMAB [Suspect]
     Active Substance: PEMBROLIZUMAB
     Indication: Lung adenocarcinoma stage IV
     Dosage: C3
     Route: 042
     Dates: start: 20210625

REACTIONS (1)
  - Haemophagocytic lymphohistiocytosis [Recovered/Resolved]

NARRATIVE: CASE EVENT DATE: 20210711
